FAERS Safety Report 7236464-8 (Version None)
Quarter: 2011Q1

REPORT INFORMATION
  Report Type: 
  Country: None (occurrence: None)
  Receive Date: 20110120
  Receipt Date: 20110117
  Transmission Date: 20110831
  Serious: Yes (Hospitalization)
  Sender: FDA-Public Use
  Company Number: US-CEPHALON-2011000297

PATIENT
  Sex: Female

DRUGS (8)
  1. THALITONE [Concomitant]
  2. PRINIVIL [Concomitant]
  3. FOLIC ACID [Concomitant]
  4. NUVIGIL [Suspect]
     Indication: NARCOLEPSY
     Route: 048
     Dates: start: 20100701, end: 20110111
  5. ASA [Concomitant]
  6. SYNTHROID [Concomitant]
  7. MIRAPEX [Concomitant]
  8. MULTI-VITAMINS [Concomitant]

REACTIONS (2)
  - RENAL MASS [None]
  - RENAL HAEMATOMA [None]
